FAERS Safety Report 5961965-X (Version None)
Quarter: 2008Q4

REPORT INFORMATION
  Report Type: 
  Country: None (occurrence: None)
  Receive Date: 20081121
  Receipt Date: 20081110
  Transmission Date: 20090506
  Serious: Yes (Hospitalization)
  Sender: FDA-Public Use
  Company Number: US-WYE-H06802108

PATIENT
  Age: 22 Year
  Sex: Female
  Weight: 90.8 kg

DRUGS (4)
  1. PRISTIQ [Suspect]
     Indication: MAJOR DEPRESSION
     Route: 048
     Dates: start: 20080815
  2. AMITRIPTYLINE HCL [Concomitant]
     Indication: DEPRESSION
  3. ADVIL [Suspect]
     Dosage: OVERDOSE AMOUNT UNKNOWN
  4. KLONOPIN [Concomitant]
     Indication: ANXIETY
     Route: 048

REACTIONS (2)
  - INTENTIONAL OVERDOSE [None]
  - SUICIDE ATTEMPT [None]
